FAERS Safety Report 25732734 (Version 1)
Quarter: 2025Q3

REPORT INFORMATION
  Report Type: Report from Study
  Country: CA (occurrence: CA)
  Receive Date: 20250827
  Receipt Date: 20250827
  Transmission Date: 20251021
  Serious: Yes (Other)
  Sender: TAKEDA
  Company Number: CA-TAKEDA-2021TUS036479

PATIENT
  Sex: Male

DRUGS (22)
  1. VEDOLIZUMAB [Suspect]
     Active Substance: VEDOLIZUMAB
     Indication: Colitis ulcerative
  2. VEDOLIZUMAB [Suspect]
     Active Substance: VEDOLIZUMAB
     Dosage: 300 MILLIGRAM, Q4WEEKS
     Dates: start: 20210714
  3. VEDOLIZUMAB [Suspect]
     Active Substance: VEDOLIZUMAB
     Dosage: 300 MILLIGRAM, Q4WEEKS
  4. VEDOLIZUMAB [Suspect]
     Active Substance: VEDOLIZUMAB
     Dosage: 300 MILLIGRAM, Q4WEEKS
  5. VEDOLIZUMAB [Suspect]
     Active Substance: VEDOLIZUMAB
     Dosage: 300 MILLIGRAM, Q4WEEKS
  6. VEDOLIZUMAB [Suspect]
     Active Substance: VEDOLIZUMAB
     Dosage: 300 MILLIGRAM, Q4WEEKS
  7. VEDOLIZUMAB [Suspect]
     Active Substance: VEDOLIZUMAB
     Dosage: 300 MILLIGRAM, Q4WEEKS
  8. VEDOLIZUMAB [Suspect]
     Active Substance: VEDOLIZUMAB
     Dosage: 300 MILLIGRAM, Q4WEEKS
  9. VEDOLIZUMAB [Suspect]
     Active Substance: VEDOLIZUMAB
     Dosage: 300 MILLIGRAM, Q4WEEKS
  10. VEDOLIZUMAB [Suspect]
     Active Substance: VEDOLIZUMAB
     Dosage: 300 MILLIGRAM, Q4WEEKS
  11. VEDOLIZUMAB [Suspect]
     Active Substance: VEDOLIZUMAB
     Dosage: 300 MILLIGRAM, Q4WEEKS
  12. VEDOLIZUMAB [Suspect]
     Active Substance: VEDOLIZUMAB
     Dosage: 300 MILLIGRAM, Q4WEEKS
  13. CEPHALEXIN [Suspect]
     Active Substance: CEPHALEXIN
     Indication: Product used for unknown indication
  14. MESALAMINE [Concomitant]
     Active Substance: MESALAMINE
  15. BISOPROLOL [Concomitant]
     Active Substance: BISOPROLOL
  16. PANTOPRAZOLE [Concomitant]
     Active Substance: PANTOPRAZOLE
  17. EZETIMIBE [Concomitant]
     Active Substance: EZETIMIBE
  18. FUROSEMIDE [Concomitant]
     Active Substance: FUROSEMIDE
  19. ATORVASTATIN [Concomitant]
     Active Substance: ATORVASTATIN
  20. SPIRONOLACTONE [Concomitant]
     Active Substance: SPIRONOLACTONE
  21. TAMSULOSIN [Concomitant]
     Active Substance: TAMSULOSIN
  22. ASPIRIN [Concomitant]
     Active Substance: ASPIRIN

REACTIONS (14)
  - Urinary retention [Unknown]
  - Blister infected [Unknown]
  - Limb discomfort [Unknown]
  - Infection [Unknown]
  - Limb injury [Unknown]
  - Blister [Not Recovered/Not Resolved]
  - Burning sensation [Not Recovered/Not Resolved]
  - Frustration tolerance decreased [Unknown]
  - Localised infection [Recovered/Resolved]
  - Oedema [Recovering/Resolving]
  - Urinary tract infection [Unknown]
  - Erythema [Unknown]
  - Rash [Unknown]
  - Pain in extremity [Unknown]
